FAERS Safety Report 9425909 (Version 4)
Quarter: 2014Q2

REPORT INFORMATION
  Report Type: Spontaneous
  Country: FR (occurrence: FR)
  Receive Date: 20130729
  Receipt Date: 20140618
  Transmission Date: 20141212
  Serious: Yes (Death)
  Sender: FDA-Public Use
  Company Number: FR-SANOFI-AVENTIS-2013SA073425

PATIENT
  Age: 2 Month
  Sex: Female
  Weight: 5.23 kg

DRUGS (11)
  1. LASILIX [Suspect]
     Indication: SODIUM RETENTION
     Route: 065
     Dates: start: 20130702
  2. LASILIX [Suspect]
     Indication: SODIUM RETENTION
     Route: 065
     Dates: start: 20130705
  3. NIFEDIPINE ^RATIOPHARM^ [Suspect]
     Indication: HYPERTENSION
     Dosage: 0.1 ML OR 1ML
     Route: 048
     Dates: start: 20130618
  4. ALDACTONE [Suspect]
     Indication: SODIUM RETENTION
     Route: 065
     Dates: start: 20130701
  5. PROGLYCEM [Suspect]
     Indication: HYPOGLYCAEMIA
     Dosage: STRENGTH: 50MG/ML?WITH PROGRESSIVE ESCALATION DOSE (UNTIL 12MG/KG/DAY ON 27-JUN-2013)
     Route: 065
     Dates: start: 20130620
  6. EFFERALGAN [Suspect]
     Indication: PRODUCT USED FOR UNKNOWN INDICATION
     Route: 065
  7. FOLIC ACID [Suspect]
     Indication: PRODUCT USED FOR UNKNOWN INDICATION
     Route: 065
  8. ALFACALCIDOL [Suspect]
     Indication: HYPOCALCAEMIA
     Route: 065
     Dates: start: 20130704, end: 20130706
  9. CALCIUM GLUCONATE [Suspect]
     Indication: HYPOCALCAEMIA
     Dosage: DOSE: 8X2ML, STRENGTH: 10 %
     Route: 065
     Dates: start: 20130704
  10. POTASSIUM GLUCONATE [Suspect]
     Indication: HYPOKALAEMIA
     Route: 065
     Dates: start: 20130703, end: 20130706
  11. GLUCAGON [Concomitant]
     Dates: start: 20130426

REACTIONS (1)
  - Cardio-respiratory arrest [Fatal]
